FAERS Safety Report 6134963-3 (Version None)
Quarter: 2009Q1

REPORT INFORMATION
  Report Type: 
  Country: None (occurrence: None)
  Receive Date: 20090327
  Receipt Date: 20090317
  Transmission Date: 20090719
  Serious: Yes (Death)
  Sender: FDA-Public Use
  Company Number: IT-WATSON-2009-01778

PATIENT
  Age: 56 Year
  Sex: Male

DRUGS (9)
  1. PREDNISONE (WATSON LABORATORIES) [Suspect]
     Indication: PROSTATE CANCER
  2. CARBOPLATIN (WATSON LABORATORIES) [Suspect]
     Indication: PROSTATE CANCER
  3. DEXAMETHASONE [Suspect]
     Indication: PROSTATE CANCER
     Dosage: 16 MG, DAILY
  4. ETOPOSIDE [Suspect]
     Indication: PROSTATE CANCER
  5. ERYTHROPOIETIN [Suspect]
     Indication: PROSTATE CANCER
  6. THALIDOMIDE [Suspect]
     Indication: PROSTATE CANCER
     Dosage: UNK
  7. MITOXANTRONE [Suspect]
     Indication: PROSTATE CANCER
  8. ESTRAMUSTINE [Suspect]
     Indication: PROSTATE CANCER
  9. PACLITAXEL [Suspect]
     Indication: PROSTATE CANCER

REACTIONS (1)
  - DISSEMINATED INTRAVASCULAR COAGULATION [None]
